FAERS Safety Report 5692225-2 (Version None)
Quarter: 2008Q1

REPORT INFORMATION
  Report Type: 
  Country: None (occurrence: None)
  Receive Date: 20080331
  Receipt Date: 20070702
  Transmission Date: 20080703
  Serious: Yes (Hospitalization)
  Sender: FDA-Public Use
  Company Number: WAES 0703FRA00073

PATIENT
  Age: 44 Year
  Sex: Female

DRUGS (3)
  1. INDOCIN [Suspect]
     Indication: SCIATICA
     Dosage: PO
     Route: 048
     Dates: start: 20070123, end: 20070131
  2. PROPOXYPHENE HCL, ASPIRIN AND CAFFEINE [Concomitant]
  3. CLONAZEPAM [Concomitant]

REACTIONS (5)
  - APHASIA [None]
  - DYSPHEMIA [None]
  - HEADACHE [None]
  - PHOTOPHOBIA [None]
  - SPEECH DISORDER [None]
